FAERS Safety Report 17005806 (Version 1)
Quarter: 2019Q4

REPORT INFORMATION
  Report Type: Spontaneous
  Country: US (occurrence: US)
  Receive Date: 20191106
  Receipt Date: 20191106
  Transmission Date: 20200122
  Serious: Yes (Hospitalization, Other)
  Sender: FDA-Public Use
  Company Number: None

PATIENT
  Age: 82 Year
  Sex: Male
  Weight: 68 kg

DRUGS (2)
  1. CORTISONE SHOT [Concomitant]
     Active Substance: HYDROCORTISONE
     Dates: start: 20191031, end: 20191031
  2. CORTISONE [Suspect]
     Active Substance: CORTISONE

REACTIONS (1)
  - Hiccups [None]

NARRATIVE: CASE EVENT DATE: 20191105
